FAERS Safety Report 6425907-5 (Version None)
Quarter: 2009Q4

REPORT INFORMATION
  Report Type: 
  Country: None (occurrence: None)
  Receive Date: 20091030
  Receipt Date: 20091016
  Transmission Date: 20100525
  Serious: Yes (Death, Hospitalization)
  Sender: FDA-Public Use
  Company Number: 2009AC000237

PATIENT
  Age: 79 Year
  Sex: Female

DRUGS (38)
  1. DIGOXIN [Suspect]
     Dosage: .25 MG, QD, PO
     Route: 048
     Dates: start: 20000321, end: 20070721
  2. ALPRAZOLAM [Concomitant]
  3. REZULIN [Concomitant]
  4. GLUCOPHAGE [Concomitant]
  5. FUROSEMIDE [Concomitant]
  6. CAPTOPRIL [Concomitant]
  7. ACTOS [Concomitant]
  8. CIMETIDINE [Concomitant]
  9. AVELOX [Concomitant]
  10. COREG [Concomitant]
  11. LIPITOR [Concomitant]
  12. CELEXA [Concomitant]
  13. COUMADIN [Concomitant]
  14. ZETIA [Concomitant]
  15. NIASPAN [Concomitant]
  16. AMARYL [Concomitant]
  17. INSPRA [Concomitant]
  18. OXYCODONE [Concomitant]
  19. TRICOR [Concomitant]
  20. LANTUS [Concomitant]
  21. AVANDIA [Concomitant]
  22. FLONASE [Concomitant]
  23. VYTORIN [Concomitant]
  24. LISINOPRIL [Concomitant]
  25. SPIRONOLACTONE [Concomitant]
  26. LEVAQUIN [Concomitant]
  27. METOPROLOL [Concomitant]
  28. HUMALOG [Concomitant]
  29. ZOCOR [Concomitant]
  30. DEMEROL [Concomitant]
  31. XANAX [Concomitant]
  32. PRILOSEC [Concomitant]
  33. SENOKOT [Concomitant]
  34. FENOFIBRATE [Concomitant]
  35. CALCIUM CARBONATE [Concomitant]
  36. TOBRADEX [Concomitant]
  37. CAPOTEN [Concomitant]
  38. AMARYL [Concomitant]

REACTIONS (41)
  - ATRIOVENTRICULAR BLOCK COMPLETE [None]
  - AZOTAEMIA [None]
  - CARDIAC FAILURE [None]
  - CARDIAC FAILURE CONGESTIVE [None]
  - CARDIOMEGALY [None]
  - CHEST PAIN [None]
  - COLD SWEAT [None]
  - CONCUSSION [None]
  - CONFUSIONAL STATE [None]
  - DECREASED APPETITE [None]
  - DEHYDRATION [None]
  - ECONOMIC PROBLEM [None]
  - ELECTROCARDIOGRAM ABNORMAL [None]
  - ELECTROCARDIOGRAM QRS COMPLEX PROLONGED [None]
  - FACE INJURY [None]
  - FACIAL BONES FRACTURE [None]
  - FALL [None]
  - FATIGUE [None]
  - GENERAL PHYSICAL HEALTH DETERIORATION [None]
  - HAEMODIALYSIS [None]
  - HYPERGLYCAEMIA [None]
  - HYPERKALAEMIA [None]
  - HYPOGLYCAEMIA [None]
  - HYPOPHAGIA [None]
  - HYPOTENSION [None]
  - HYPOVOLAEMIA [None]
  - INTERNATIONAL NORMALISED RATIO INCREASED [None]
  - LOSS OF CONSCIOUSNESS [None]
  - MULTIPLE INJURIES [None]
  - PLEURAL EFFUSION [None]
  - PROTHROMBIN TIME PROLONGED [None]
  - PULMONARY OEDEMA [None]
  - RENAL ATROPHY [None]
  - RENAL FAILURE ACUTE [None]
  - RENAL FAILURE CHRONIC [None]
  - RESPIRATORY DISTRESS [None]
  - SMALL INTESTINAL OBSTRUCTION [None]
  - TACHYCARDIA [None]
  - THERAPEUTIC AGENT TOXICITY [None]
  - UNEVALUABLE EVENT [None]
  - URINARY TRACT INFECTION [None]
